FAERS Safety Report 25096407 (Version 1)
Quarter: 2025Q1

REPORT INFORMATION
  Report Type: Spontaneous
  Country: US (occurrence: US)
  Receive Date: 20250319
  Receipt Date: 20250319
  Transmission Date: 20250409
  Serious: No
  Sender: PFIZER
  Company Number: US-PFIZER INC-PV202500032626

PATIENT
  Age: 57 Year
  Sex: Male

DRUGS (1)
  1. INLYTA [Suspect]
     Active Substance: AXITINIB

REACTIONS (4)
  - Appetite disorder [Unknown]
  - Oropharyngeal pain [Unknown]
  - Blood pressure diastolic increased [Unknown]
  - Fatigue [Unknown]
